FAERS Safety Report 20138176 (Version 3)
Quarter: 2022Q1

REPORT INFORMATION
  Report Type: Spontaneous
  Country: NL (occurrence: NL)
  Receive Date: 20211202
  Receipt Date: 20220103
  Transmission Date: 20220423
  Serious: Yes (Hospitalization, Other)
  Sender: FDA-Public Use
  Company Number: NL-LUPIN PHARMACEUTICALS INC.-2021-23421

PATIENT
  Age: 34 Year
  Sex: Female

DRUGS (7)
  1. POTASSIUM [Suspect]
     Active Substance: POTASSIUM
     Indication: Euglycaemic diabetic ketoacidosis
     Dosage: UNK
     Route: 042
  2. INSULIN NOS [Suspect]
     Active Substance: INSULIN NOS
     Indication: Type 1 diabetes mellitus
     Dosage: UNK
     Route: 042
  3. INSULIN NOS [Suspect]
     Active Substance: INSULIN NOS
     Dosage: 3.6 INTERNATIONAL UNIT
  4. SODIUM CHLORIDE [Suspect]
     Active Substance: SODIUM CHLORIDE
     Indication: Euglycaemic diabetic ketoacidosis
     Dosage: 2 LITER
     Route: 065
  5. DEXTROSE [Suspect]
     Active Substance: DEXTROSE
     Indication: Euglycaemic diabetic ketoacidosis
     Dosage: UNK
     Route: 042
  6. SODIUM BICARBONATE [Suspect]
     Active Substance: SODIUM BICARBONATE
     Indication: Supplementation therapy
     Dosage: UNK
     Route: 065
  7. SODIUM BICARBONATE [Suspect]
     Active Substance: SODIUM BICARBONATE
     Indication: Metabolic acidosis

REACTIONS (3)
  - Drug ineffective [Unknown]
  - Exposure during pregnancy [Unknown]
  - Premature delivery [Unknown]
